FAERS Safety Report 16659975 (Version 1)
Quarter: 2019Q3

REPORT INFORMATION
  Report Type: Spontaneous
  Country: DE (occurrence: DE)
  Receive Date: 20190802
  Receipt Date: 20190802
  Transmission Date: 20191004
  Serious: Yes (Hospitalization)
  Sender: FDA-Public Use
  Company Number: DE-TEVA-2019-DE-1086616

PATIENT
  Sex: Male

DRUGS (2)
  1. METRONIDAZOL [Suspect]
     Active Substance: METRONIDAZOLE
     Indication: PERIODONTAL DISEASE
     Dosage: 1-1-1; 400 MILLIGRAM PER 8 HOURS
     Dates: start: 2017
  2. CIPROFLOXACIN. [Suspect]
     Active Substance: CIPROFLOXACIN
     Indication: PERIODONTAL DISEASE
     Dosage: 1-0-1 ; 250 MILLIGRAM PER 12 HOURS
     Dates: start: 2017

REACTIONS (2)
  - Rash generalised [Unknown]
  - Arthropathy [Not Recovered/Not Resolved]

NARRATIVE: CASE EVENT DATE: 2017
